FAERS Safety Report 5671381-6 (Version None)
Quarter: 2008Q1

REPORT INFORMATION
  Report Type: 
  Country: None (occurrence: None)
  Receive Date: 20080313
  Receipt Date: 20070320
  Transmission Date: 20080703
  Serious: Yes (Other)
  Sender: FDA-Public Use
  Company Number: MK-6032995

PATIENT
  Age: 6 Week
  Sex: Female
  Weight: 2.8 kg

DRUGS (2)
  1. RANITIDINE [Suspect]
     Indication: DRUG USE FOR UNKNOWN INDICATION
     Dosage: ;UNKNOWN;ORAL
     Route: 048
     Dates: start: 20070206, end: 20070212
  2. GAVISCON [Suspect]
     Indication: DRUG USE FOR UNKNOWN INDICATION
     Dosage: ;UNKNOWN;ORAL
     Route: 048

REACTIONS (2)
  - ALANINE AMINOTRANSFERASE INCREASED [None]
  - HEPATIC FUNCTION ABNORMAL [None]
